FAERS Safety Report 13195706 (Version 1)
Quarter: 2017Q1

REPORT INFORMATION
  Report Type: Report from Study
  Country: FR (occurrence: FR)
  Receive Date: 20170208
  Receipt Date: 20170208
  Transmission Date: 20170428
  Serious: Yes (Hospitalization)
  Sender: FDA-Public Use
  Company Number: FR-ROCHE-1890000

PATIENT
  Sex: Female
  Weight: 65 kg

DRUGS (10)
  1. LEVOTHYROX [Concomitant]
     Active Substance: LEVOTHYROXINE
     Indication: HYPOTHYROIDISM
     Dosage: ONGOING TREATMENT
     Route: 065
     Dates: start: 2004
  2. SOVALDI [Suspect]
     Active Substance: SOFOSBUVIR
     Indication: HEPATITIS C
     Route: 065
     Dates: start: 20140725, end: 20141016
  3. ETIOVEN [Concomitant]
     Active Substance: NAFTAZONE
     Dosage: ONGOING TREATMENT - INTAKE ONCE A DAY
     Route: 065
  4. DACLATASVIR. [Suspect]
     Active Substance: DACLATASVIR
     Indication: HEPATITIS C
     Route: 065
     Dates: start: 20140725, end: 20141016
  5. KENZEN [Concomitant]
     Active Substance: CANDESARTAN
     Indication: HYPERTENSION
     Dosage: ONGOING TREATMENT
     Route: 065
     Dates: start: 2004
  6. DOLENIO [Concomitant]
     Active Substance: GLUCOSAMINE
     Indication: OSTEOARTHRITIS
     Dosage: ONGOING TREATMENT - INTAKE ONCE A DAY
     Route: 065
     Dates: start: 2013
  7. INNOHEP [Concomitant]
     Active Substance: TINZAPARIN SODIUM
     Route: 065
  8. SELOKEN [Concomitant]
     Active Substance: METOPROLOL
     Indication: HYPERTENSION
     Dosage: ONGOING TREATMENT - INTAKE ONCE A DAY
     Route: 065
     Dates: start: 2004
  9. RIBAVIRIN. [Suspect]
     Active Substance: RIBAVIRIN
     Indication: HEPATITIS C
     Route: 065
     Dates: start: 2013, end: 2014
  10. PEG-INTERFERON ALFA 2A [Suspect]
     Active Substance: PEGINTERFERON ALFA-2A
     Indication: HEPATITIS C
     Route: 065
     Dates: start: 2013, end: 2014

REACTIONS (1)
  - Hepatocellular carcinoma [Recovered/Resolved]

NARRATIVE: CASE EVENT DATE: 20151208
